FAERS Safety Report 9781167 (Version 1)
Quarter: 2013Q4

REPORT INFORMATION
  Report Type: Spontaneous
  Country: FR (occurrence: FR)
  Receive Date: 20131224
  Receipt Date: 20131224
  Transmission Date: 20140711
  Serious: Yes (Life-Threatening)
  Sender: FDA-Public Use
  Company Number: FR-ASTRAZENECA-2013SE92790

PATIENT
  Age: 75 Year
  Sex: Male

DRUGS (5)
  1. DIPRIVAN [Suspect]
     Route: 051
     Dates: start: 20131204, end: 20131204
  2. CELOCURINE [Suspect]
     Route: 051
     Dates: start: 20131204, end: 20131204
  3. SUFENTA [Suspect]
     Route: 051
     Dates: start: 20131204, end: 20131204
  4. CARDENSIEL [Concomitant]
     Route: 048
  5. ALTEIS [Concomitant]
     Route: 048

REACTIONS (2)
  - Shock [Recovered/Resolved]
  - Cardio-respiratory arrest [Recovered/Resolved]
